FAERS Safety Report 9296494 (Version 3)
Quarter: 2013Q3

REPORT INFORMATION
  Report Type: Report from Study
  Country: DE (occurrence: DE)
  Receive Date: 20130517
  Receipt Date: 20130919
  Transmission Date: 20140515
  Serious: Yes (Hospitalization)
  Sender: FDA-Public Use
  Company Number: DE-BRISTOL-MYERS SQUIBB COMPANY-18901454

PATIENT
  Age: 64 Year
  Sex: Male

DRUGS (4)
  1. CETUXIMAB [Suspect]
     Indication: HEAD AND NECK CANCER
     Dosage: MAINTENANCE DOSE: 250MG/M2 1 IN 1 WEEK.?12AUG11-UNK?UNK-7SP11?7OCT11-UNK?MOST RECENT INF 7SEP11
     Route: 042
     Dates: start: 20110812, end: 20110907
  2. CISPLATIN [Suspect]
     Indication: HEAD AND NECK CANCER
     Dosage: MOST RECENT INF 7SEP11
     Route: 042
     Dates: start: 20110812
  3. DOCETAXEL [Suspect]
     Indication: HEAD AND NECK CANCER
     Dosage: DAY 1 WEEK 5?MOST RECENT INF 7SEP11
     Route: 042
     Dates: start: 20110812
  4. LEVOFLOXACIN [Concomitant]
     Route: 048
     Dates: start: 20110907

REACTIONS (5)
  - Hyponatraemia [Recovered/Resolved]
  - Dyspnoea [Recovered/Resolved]
  - Cough [Recovered/Resolved]
  - Dehydration [Recovered/Resolved]
  - Neutropenia [Recovered/Resolved]
